FAERS Safety Report 6565408-7 (Version None)
Quarter: 2010Q1

REPORT INFORMATION
  Report Type: 
  Country: None (occurrence: None)
  Receive Date: 20100201
  Receipt Date: 20100122
  Transmission Date: 20100710
  Serious: Yes (Hospitalization, Other)
  Sender: FDA-Public Use
  Company Number: US-CUBIST-2010S1000048

PATIENT
  Age: 44 Year
  Weight: 69 kg

DRUGS (2)
  1. CUBICIN [Suspect]
     Indication: STAPHYLOCOCCAL INFECTION
     Route: 042
     Dates: start: 20091012, end: 20091030
  2. CUBICIN [Suspect]
     Route: 042
     Dates: start: 20091012, end: 20091030

REACTIONS (1)
  - TOE AMPUTATION [None]
